FAERS Safety Report 24147425 (Version 1)
Quarter: 2024Q3

REPORT INFORMATION
  Report Type: Spontaneous
  Country: CA (occurrence: CA)
  Receive Date: 20240729
  Receipt Date: 20240729
  Transmission Date: 20241017
  Serious: Yes (Life-Threatening, Hospitalization)
  Sender: PFIZER
  Company Number: CA-PFIZER INC-202400223770

PATIENT
  Age: 4 Year
  Sex: Female
  Weight: 11 kg

DRUGS (3)
  1. VINCRISTINE SULFATE [Suspect]
     Active Substance: VINCRISTINE SULFATE
     Dosage: UNK
  2. MERCAPTOPURINE [Suspect]
     Active Substance: MERCAPTOPURINE
     Dosage: UNK
  3. PEGASPARGASE [Suspect]
     Active Substance: PEGASPARGASE
     Dosage: UNK
     Route: 042

REACTIONS (1)
  - Febrile neutropenia [Recovered/Resolved]
